FAERS Safety Report 8984209 (Version 22)
Quarter: 2018Q3

REPORT INFORMATION
  Report Type: Report from Study
  Country: CA (occurrence: CA)
  Receive Date: 20121226
  Receipt Date: 20180712
  Transmission Date: 20181010
  Serious: Yes (Other)
  Sender: FDA-Public Use
  Company Number: PHHY2012CA116361

PATIENT
  Age: 42 Year
  Sex: Male

DRUGS (11)
  1. SANDOSTATIN LAR DEPOT [Suspect]
     Active Substance: OCTREOTIDE ACETATE
     Dosage: 60 MG, QMO
     Route: 030
  2. AFINITOR [Suspect]
     Active Substance: EVEROLIMUS
     Indication: NEUROENDOCRINE TUMOUR
     Dosage: 10 MG, QD
     Route: 048
     Dates: start: 20120829
  3. SANDOSTATIN LAR DEPOT [Suspect]
     Active Substance: OCTREOTIDE ACETATE
     Dosage: 60 MG, TIW
     Route: 030
     Dates: start: 20160108
  4. VITAMIN D [Suspect]
     Active Substance: CHOLECALCIFEROL
     Indication: PRODUCT USED FOR UNKNOWN INDICATION
     Dosage: 10000 U, UNK
     Route: 048
  5. OMEGA 3 [Concomitant]
     Active Substance: OMEGA-3 FATTY ACIDS
     Indication: PRODUCT USED FOR UNKNOWN INDICATION
     Dosage: 4 DF, (CAPSULE),(AM+DINNER)
     Route: 048
  6. SANDOSTATIN LAR DEPOT [Suspect]
     Active Substance: OCTREOTIDE ACETATE
     Dosage: UNK
     Route: 065
     Dates: start: 20180630
  7. AFINITOR [Suspect]
     Active Substance: EVEROLIMUS
     Dosage: 10 MG, QD
     Route: 048
     Dates: start: 201211
  8. SANDOSTATIN LAR DEPOT [Suspect]
     Active Substance: OCTREOTIDE ACETATE
     Indication: NEUROENDOCRINE TUMOUR
     Dosage: 50 MG, QMO (EVERY 4 WEEKS)
     Route: 030
     Dates: start: 2008
  9. SANDOSTATIN LAR DEPOT [Suspect]
     Active Substance: OCTREOTIDE ACETATE
     Dosage: UNK UNK, QMO
     Route: 030
  10. SANDOSTATIN [Suspect]
     Active Substance: OCTREOTIDE ACETATE
     Indication: CARCINOID TUMOUR
     Dosage: 100 UG, PRN
     Route: 058
     Dates: start: 2016, end: 2016
  11. SANDOSTATIN [Suspect]
     Active Substance: OCTREOTIDE ACETATE
     Indication: NEUROENDOCRINE TUMOUR

REACTIONS (35)
  - Dyspnoea [Recovering/Resolving]
  - Respiratory disorder [Unknown]
  - Groin pain [Unknown]
  - Blood pressure increased [Unknown]
  - Wrong technique in product usage process [Unknown]
  - Asthma [Recovered/Resolved]
  - Hyperhidrosis [Unknown]
  - Diarrhoea [Unknown]
  - Hot flush [Not Recovered/Not Resolved]
  - Body temperature increased [Unknown]
  - Myalgia [Unknown]
  - Underdose [Unknown]
  - Depression [Unknown]
  - Acne [Unknown]
  - Malaise [Unknown]
  - Hepatic pain [Unknown]
  - Headache [Not Recovered/Not Resolved]
  - Fatigue [Recovering/Resolving]
  - Injection site inflammation [Unknown]
  - Syringe issue [Unknown]
  - Flushing [Not Recovered/Not Resolved]
  - Rhonchi [Unknown]
  - Product quality issue [Unknown]
  - Drug ineffective [Unknown]
  - Blood pressure diastolic increased [Unknown]
  - Nasopharyngitis [Unknown]
  - Dyspnoea exertional [Unknown]
  - Nausea [Unknown]
  - Pain [Recovered/Resolved]
  - Inappropriate schedule of drug administration [Unknown]
  - Drug administration error [Unknown]
  - Stress [Unknown]
  - Oedema [Unknown]
  - Injection site hypersensitivity [Unknown]
  - Needle issue [Unknown]

NARRATIVE: CASE EVENT DATE: 2016
